FAERS Safety Report 24677153 (Version 1)
Quarter: 2024Q4

REPORT INFORMATION
  Report Type: Spontaneous
  Country: DE (occurrence: DE)
  Receive Date: 20241129
  Receipt Date: 20241129
  Transmission Date: 20250115
  Serious: Yes (Other)
  Sender: AUROBINDO
  Company Number: DE-AUROBINDO-AUR-APL-2024-050823

PATIENT
  Age: 74 Year
  Sex: Male
  Weight: 68 kg

DRUGS (13)
  1. TADALAFIL [Suspect]
     Active Substance: TADALAFIL
     Indication: Prostatomegaly
     Dosage: 1 DOSAGE FORM, DAILY
     Route: 048
     Dates: start: 202409
  2. TADALAFIL [Suspect]
     Active Substance: TADALAFIL
     Dosage: 0.5 DOSAGE FORM, DAILY
     Route: 048
     Dates: start: 202409, end: 2024
  3. AGOMELATINE [Concomitant]
     Active Substance: AGOMELATINE
     Indication: Sleep disorder
     Dosage: UNK
     Route: 065
  4. AUGENTROPFEN [Concomitant]
     Indication: Intraocular pressure test
     Dosage: UNK
     Route: 065
  5. AUGENTROPFEN [Concomitant]
     Indication: Glaucoma
  6. CLONIDINE HYDROCHLORIDE [Concomitant]
     Active Substance: CLONIDINE HYDROCHLORIDE
     Indication: Intraocular pressure test
     Dosage: UNK
     Route: 065
  7. CLONIDINE HYDROCHLORIDE [Concomitant]
     Active Substance: CLONIDINE HYDROCHLORIDE
     Indication: Glaucoma
  8. LATANOPROST [Concomitant]
     Active Substance: LATANOPROST
     Indication: Intraocular pressure test
     Dosage: UNK
     Route: 065
  9. LATANOPROST [Concomitant]
     Active Substance: LATANOPROST
     Indication: Glaucoma
  10. LORAZEPAM [Concomitant]
     Active Substance: LORAZEPAM
     Indication: Sleep disorder
     Dosage: UNK
     Route: 065
  11. OMEPRAZOLE [Concomitant]
     Active Substance: OMEPRAZOLE
     Indication: Reflux gastritis
     Dosage: UNK
     Route: 065
  12. SIMVASTATIN [Concomitant]
     Active Substance: SIMVASTATIN
     Indication: Lipids increased
     Dosage: UNK
     Route: 065
  13. LEVOTHYROXINE SODIUM\POTASSIUM IODIDE [Concomitant]
     Active Substance: LEVOTHYROXINE SODIUM\POTASSIUM IODIDE
     Indication: Thyroid disorder
     Dosage: UNK
     Route: 065

REACTIONS (8)
  - Atrial fibrillation [Unknown]
  - Chest pain [Unknown]
  - Dyspnoea [Unknown]
  - Nodal arrhythmia [Unknown]
  - Dizziness [Not Recovered/Not Resolved]
  - Dyspepsia [Not Recovered/Not Resolved]
  - Nasal congestion [Not Recovered/Not Resolved]
  - Medication error [Unknown]

NARRATIVE: CASE EVENT DATE: 20240101
